FAERS Safety Report 6357734-1 (Version None)
Quarter: 2009Q3

REPORT INFORMATION
  Report Type: 
  Country: None (occurrence: None)
  Receive Date: 20090911
  Receipt Date: 20090901
  Transmission Date: 20100115
  Serious: Yes (Death)
  Sender: FDA-Public Use
  Company Number: 8051672

PATIENT
  Age: 32 Year
  Sex: Male
  Weight: 92 kg

DRUGS (2)
  1. LEVETIRACETAM [Suspect]
     Indication: EPILEPSY
     Dosage: 250 MG 2/D PO
     Route: 048
     Dates: start: 20070218, end: 20071220
  2. TEGRETOL [Suspect]
     Indication: EPILEPSY
     Dosage: 400 MG 2/D PO
     Route: 048
     Dates: start: 19980105, end: 20071220

REACTIONS (1)
  - SUDDEN UNEXPLAINED DEATH IN EPILEPSY [None]
